FAERS Safety Report 15594591 (Version 1)
Quarter: 2018Q4

REPORT INFORMATION
  Report Type: Spontaneous
  Country: CA (occurrence: CA)
  Receive Date: 20181107
  Receipt Date: 20181107
  Transmission Date: 20190205
  Serious: Yes (Other)
  Sender: FDA-Public Use
  Company Number: CA-GE HEALTHCARE LIFE SCIENCES-2018CSU004497

PATIENT

DRUGS (2)
  1. VISIPAQUE [Suspect]
     Active Substance: IODIXANOL
     Indication: ADRENAL CYST
     Dosage: 100 ML, SINGLE
     Route: 042
     Dates: start: 20181031, end: 20181031
  2. PERINDOPRIL ERBUMINE. [Concomitant]
     Active Substance: PERINDOPRIL ERBUMINE
     Indication: HYPERTENSION
     Dosage: 4 MG/1.25 ML

REACTIONS (4)
  - Feeling abnormal [Recovered/Resolved]
  - Tachycardia [Recovered/Resolved]
  - Dry mouth [Recovered/Resolved]
  - Tremor [Recovered/Resolved]

NARRATIVE: CASE EVENT DATE: 20181031
